FAERS Safety Report 4942914-X (Version None)
Quarter: 2006Q1

REPORT INFORMATION
  Report Type: 
  Country: None (occurrence: None)
  Receive Date: 20060309
  Receipt Date: 20060223
  Transmission Date: 20060701
  Serious: Yes (Death, Hospitalization)
  Sender: FDA-Public Use
  Company Number: 13590

PATIENT
  Age: 77 Year
  Sex: Female

DRUGS (7)
  1. CLOFARABINE [Suspect]
     Indication: ACUTE MYELOID LEUKAEMIA
     Dosage: 44 MG DIALY IV
     Route: 042
     Dates: start: 20050414, end: 20050418
  2. CIPROFLOXACIN HCL [Concomitant]
  3. METRONIDAZOLE [Concomitant]
  4. GENTAMICIN [Concomitant]
  5. TAZOCIN [Concomitant]
  6. NORADENALINE [Concomitant]
  7. HYDROCORTISONE [Concomitant]

REACTIONS (5)
  - DIARRHOEA [None]
  - DYSPNOEA [None]
  - HYPOTENSION [None]
  - NEUTROPENIC SEPSIS [None]
  - STAPHYLOCOCCAL INFECTION [None]
